FAERS Safety Report 24347028 (Version 1)
Quarter: 2024Q3

REPORT INFORMATION
  Report Type: Spontaneous
  Country: US (occurrence: US)
  Receive Date: 20240921
  Receipt Date: 20240921
  Transmission Date: 20241017
  Serious: Yes (Other)
  Sender: ROCHE
  Company Number: US-ROCHE-10000087552

PATIENT
  Sex: Female
  Weight: 138.8 kg

DRUGS (1)
  1. OCREVUS [Suspect]
     Active Substance: OCRELIZUMAB
     Indication: Relapsing-remitting multiple sclerosis
     Dosage: TWICE A YEAR, CLARIFIED AS EVERY 6 MONTHS
     Route: 042
     Dates: start: 20200928

REACTIONS (1)
  - Papillary thyroid cancer [Unknown]
